FAERS Safety Report 10473755 (Version 1)
Quarter: 2014Q3

REPORT INFORMATION
  Report Type: Spontaneous
  Country: US (occurrence: US)
  Receive Date: 20140924
  Receipt Date: 20140924
  Transmission Date: 20150326
  Serious: Yes (Hospitalization, Other)
  Sender: FDA-Public Use
  Company Number: US-ABBVIE-14P-163-1285291-00

PATIENT
  Sex: Male

DRUGS (3)
  1. TESTOSTERONE CYPIONATE. [Suspect]
     Active Substance: TESTOSTERONE CYPIONATE
     Indication: HORMONE REPLACEMENT THERAPY
     Dates: start: 201103
  2. AXIRON [Suspect]
     Active Substance: TESTOSTERONE
     Indication: HORMONE REPLACEMENT THERAPY
  3. ANDROGEL [Suspect]
     Active Substance: TESTOSTERONE
     Indication: HORMONE REPLACEMENT THERAPY

REACTIONS (7)
  - Acute myocardial infarction [Unknown]
  - Injury [Unknown]
  - Economic problem [Unknown]
  - Pain [Unknown]
  - Loss of consciousness [Unknown]
  - Emotional distress [Unknown]
  - Impaired work ability [Unknown]

NARRATIVE: CASE EVENT DATE: 20110915
